FAERS Safety Report 12149764 (Version 1)
Quarter: 2016Q1

REPORT INFORMATION
  Report Type: Spontaneous
  Country: FR (occurrence: FR)
  Receive Date: 20160304
  Receipt Date: 20160304
  Transmission Date: 20160526
  Serious: Yes (Hospitalization)
  Sender: FDA-Public Use
  Company Number: FR-ASTRAZENECA-2016SE21116

PATIENT
  Age: 30 Year
  Sex: Female

DRUGS (3)
  1. XEROQUEL [Suspect]
     Active Substance: QUETIAPINE FUMARATE
     Route: 048
  2. ZOPICLONE [Suspect]
     Active Substance: ZOPICLONE
     Route: 048
  3. XANAX [Suspect]
     Active Substance: ALPRAZOLAM
     Route: 048

REACTIONS (7)
  - Mydriasis [Unknown]
  - Hypoaesthesia [Unknown]
  - Arthralgia [Unknown]
  - Amnesia [Unknown]
  - Confusional state [Unknown]
  - Fall [Recovered/Resolved]
  - Loss of consciousness [Unknown]

NARRATIVE: CASE EVENT DATE: 20160216
